FAERS Safety Report 4368000-8 (Version None)
Quarter: 2004Q2

REPORT INFORMATION
  Report Type: 
  Country: None (occurrence: None)
  Receive Date: 20040527
  Receipt Date: 20040322
  Transmission Date: 20050107
  Serious: No
  Sender: FDA-Public Use
  Company Number: 205428

PATIENT
  Age: 59 Year
  Sex: Female
  Weight: 80 kg

DRUGS (5)
  1. RAPTIVA [Suspect]
     Indication: PSORIASIS
     Dosage: 80 MG, 1/ WEEK, SUBCUTANEOUS
     Route: 058
     Dates: start: 20031201
  2. XANAX [Concomitant]
  3. PRAVACHOL [Concomitant]
  4. SYNTHROID [Concomitant]
  5. ZIAC [Concomitant]

REACTIONS (1)
  - TONGUE ERUPTION [None]
